FAERS Safety Report 23150614 (Version 2)
Quarter: 2023Q4

REPORT INFORMATION
  Report Type: Spontaneous
  Country: IT (occurrence: IT)
  Receive Date: 20231106
  Receipt Date: 20231114
  Transmission Date: 20240109
  Serious: No
  Sender: FDA-Public Use
  Company Number: IT-PFIZER INC-202300352857

PATIENT
  Age: 74 Year
  Sex: Female

DRUGS (1)
  1. TAVOR (LORAZEPAM) [Suspect]
     Active Substance: LORAZEPAM
     Dosage: 1 MG, SINGLE

REACTIONS (5)
  - Hypersensitivity [Recovered/Resolved]
  - Erythema [Unknown]
  - Eye swelling [Unknown]
  - Mouth swelling [Unknown]
  - Pharyngeal swelling [Unknown]

NARRATIVE: CASE EVENT DATE: 20220101
